FAERS Safety Report 13569185 (Version 1)
Quarter: 2017Q2

REPORT INFORMATION
  Report Type: Spontaneous
  Country: BR (occurrence: BR)
  Receive Date: 20170522
  Receipt Date: 20170522
  Transmission Date: 20170830
  Serious: Yes (Death)
  Sender: FDA-Public Use
  Company Number: BR-TEVA-769497ISR

PATIENT
  Age: 42 Year
  Sex: Male

DRUGS (4)
  1. TRISENOX [Suspect]
     Active Substance: ARSENIC TRIOXIDE
     Indication: ACUTE PROMYELOCYTIC LEUKAEMIA
     Dosage: 10 MILLIGRAM DAILY;
     Route: 065
  2. HIDROXICARBAMIDA (THIRD PRODUCTS) [Suspect]
     Active Substance: HYDROXYUREA
     Indication: ACUTE PROMYELOCYTIC LEUKAEMIA
     Route: 065
  3. IDARRUBICINA (THIRD PRODUCTS) [Suspect]
     Active Substance: IDARUBICIN HYDROCHLORIDE
     Indication: ACUTE PROMYELOCYTIC LEUKAEMIA
     Route: 065
  4. CITARABINA (THIRD PRODUCTS) [Suspect]
     Active Substance: CYTARABINE
     Indication: ACUTE PROMYELOCYTIC LEUKAEMIA
     Route: 065

REACTIONS (7)
  - Pleural effusion [Fatal]
  - Pyrexia [Fatal]
  - Pericardial effusion [Fatal]
  - Haemoptysis [Fatal]
  - Chest discomfort [Fatal]
  - Tuberculosis [Fatal]
  - Dyspnoea [Fatal]
